FAERS Safety Report 16127463 (Version 1)
Quarter: 2019Q1

REPORT INFORMATION
  Report Type: Spontaneous
  Country: US (occurrence: US)
  Receive Date: 20190328
  Receipt Date: 20190328
  Transmission Date: 20190418
  Serious: No
  Sender: FDA-Public Use
  Company Number: US-PFIZER INC-2019122259

PATIENT
  Age: 58 Year
  Sex: Male

DRUGS (2)
  1. NALBUPHINE HYDROCHLORIDE. [Suspect]
     Active Substance: NALBUPHINE HYDROCHLORIDE
     Dosage: UNK
     Dates: start: 2008, end: 20190305
  2. NALBUPHINE HYDROCHLORIDE. [Suspect]
     Active Substance: NALBUPHINE HYDROCHLORIDE
     Dosage: UNK
     Dates: start: 2008, end: 20190305

REACTIONS (3)
  - Pain [Unknown]
  - Memory impairment [Unknown]
  - Anxiety [Unknown]
